FAERS Safety Report 25891961 (Version 2)
Quarter: 2025Q4

REPORT INFORMATION
  Report Type: Report from Study
  Country: US (occurrence: US)
  Receive Date: 20251007
  Receipt Date: 20251226
  Transmission Date: 20260117
  Serious: No
  Sender: SANDOZ
  Company Number: US-SANDOZ-SDZ2025US054221

PATIENT
  Sex: Male

DRUGS (1)
  1. OMNITROPE [Suspect]
     Active Substance: SOMATROPIN
     Indication: Growth hormone deficiency
     Dosage: 0.9 MG, QD (10 MG / 1.5 ML)
     Dates: start: 20250716

REACTIONS (3)
  - Therapy interrupted [Unknown]
  - Circumstance or information capable of leading to medication error [Unknown]
  - Device breakage [Unknown]
